FAERS Safety Report 8970761 (Version 2)
Quarter: 2012Q4

REPORT INFORMATION
  Report Type: 
  Country: US (occurrence: US)
  Receive Date: 20121218
  Receipt Date: 20121228
  Transmission Date: 20130627
  Serious: Yes (Other)
  Sender: FDA-Public Use
  Company Number: US-SANOFI-AVENTIS-2012SA090439

PATIENT
  Age: 73 Year
  Sex: Female
  Weight: 48.63 kg

DRUGS (5)
  1. MULTAQ [Suspect]
     Indication: ATRIAL FIBRILLATION
     Route: 048
     Dates: start: 20120120
  2. MULTAQ [Suspect]
     Indication: ATRIAL FIBRILLATION
     Route: 048
  3. TETRACYCLINE [Concomitant]
     Indication: ACNE
  4. PENICILLIN NOS [Concomitant]
  5. CODEINE [Concomitant]

REACTIONS (5)
  - Weight decreased [Unknown]
  - Stress [Unknown]
  - Atrial fibrillation [Unknown]
  - Herpes zoster [Recovered/Resolved]
  - Fatigue [Unknown]
